FAERS Safety Report 4290935-5 (Version None)
Quarter: 2004Q1

REPORT INFORMATION
  Report Type: 
  Country: None (occurrence: None)
  Receive Date: 20040211
  Receipt Date: 20031015
  Transmission Date: 20041129
  Serious: No
  Sender: FDA-Public Use
  Company Number: US-GLAXOSMITHKLINE-A0430465A

PATIENT
  Age: 56 Year
  Sex: Male

DRUGS (3)
  1. PAXIL [Suspect]
     Indication: DEPRESSION
     Dosage: 20MG PER DAY
     Route: 048
  2. ALCOHOL [Suspect]
     Route: 048
     Dates: start: 20031001, end: 20031001
  3. TRAZODONE HCL [Concomitant]

REACTIONS (3)
  - DRUG INTERACTION [None]
  - MEMORY IMPAIRMENT [None]
  - PHYSICAL ASSAULT [None]
